FAERS Safety Report 25584747 (Version 3)
Quarter: 2025Q4

REPORT INFORMATION
  Report Type: Report from Study
  Country: CA (occurrence: None)
  Receive Date: 20250721
  Receipt Date: 20251120
  Transmission Date: 20260117
  Serious: Yes (Hospitalization, Other)
  Sender: ORION
  Company Number: CA-TAKEDA-2020TUS030840

PATIENT
  Age: 78 Year
  Sex: Female

DRUGS (13)
  1. METHOTREXATE [Suspect]
     Active Substance: METHOTREXATE
     Indication: Product used for unknown indication
  2. PANTOPRAZOLE SODIUM [Suspect]
     Active Substance: PANTOPRAZOLE SODIUM
     Indication: Product used for unknown indication
  3. ENTYVIO [Suspect]
     Active Substance: VEDOLIZUMAB
     Indication: Colitis ulcerative
     Dates: start: 20200703
  4. ENTYVIO [Suspect]
     Active Substance: VEDOLIZUMAB
  5. ENTYVIO [Suspect]
     Active Substance: VEDOLIZUMAB
     Dosage: (EVERY 4 WEEKS)
     Dates: start: 20201106
  6. ENTYVIO [Suspect]
     Active Substance: VEDOLIZUMAB
     Dosage: (EVERY 4 WEEKS)
  7. ENTYVIO [Suspect]
     Active Substance: VEDOLIZUMAB
     Dosage: (EVERY 4 WEEKS)
  8. ENTYVIO [Suspect]
     Active Substance: VEDOLIZUMAB
     Dosage: (EVERY 4 WEEKS)
  9. ENTYVIO [Suspect]
     Active Substance: VEDOLIZUMAB
     Dosage: (EVERY 4 WEEKS)
  10. ENTYVIO [Suspect]
     Active Substance: VEDOLIZUMAB
     Dosage: (EVERY 4 WEEKS)
  11. ENTYVIO [Suspect]
     Active Substance: VEDOLIZUMAB
     Dosage: (EVERY 4 WEEKS)
  12. ENTYVIO [Suspect]
     Active Substance: VEDOLIZUMAB
     Dosage: CYCLICAL
     Dates: end: 20251007
  13. PENTASA [Concomitant]
     Active Substance: MESALAMINE

REACTIONS (17)
  - Haematochezia [Recovering/Resolving]
  - Colitis ulcerative [Unknown]
  - General physical health deterioration [Not Recovered/Not Resolved]
  - Diarrhoea [Recovering/Resolving]
  - Asthenia [Recovering/Resolving]
  - Vomiting [Recovering/Resolving]
  - Nausea [Recovering/Resolving]
  - Fall [Unknown]
  - Rib fracture [Unknown]
  - Myelodysplastic syndrome [Unknown]
  - Bacteraemia [Unknown]
  - Bicytopenia [Unknown]
  - Urinary tract infection [Unknown]
  - Pneumonia [Unknown]
  - Abdominal pain lower [Unknown]
  - Anaemia macrocytic [Unknown]
  - Osteoarthritis [Unknown]
